FAERS Safety Report 14249373 (Version 8)
Quarter: 2018Q1

REPORT INFORMATION
  Report Type: Report from Study
  Country: TR (occurrence: TR)
  Receive Date: 20171204
  Receipt Date: 20180216
  Transmission Date: 20180508
  Serious: Yes (Death, Life-Threatening, Hospitalization)
  Sender: FDA-Public Use
  Company Number: TR-AMGEN-TURCT2017179898

PATIENT
  Age: 57 Year
  Sex: Female
  Weight: 111 kg

DRUGS (24)
  1. DEXAMETHASONE. [Concomitant]
     Active Substance: DEXAMETHASONE
     Indication: PLASMA CELL MYELOMA
     Dosage: 20-40 MG, UNK
     Route: 042
     Dates: start: 20170801, end: 20171129
  2. PANTACTIVE [Concomitant]
     Dosage: 40 MG, UNK
     Dates: start: 2016, end: 20171129
  3. LANTUS [Concomitant]
     Active Substance: INSULIN GLARGINE
     Dosage: 3 ML, UNK
     Dates: start: 20171116, end: 20171129
  4. CYMBALTA [Concomitant]
     Active Substance: DULOXETINE HYDROCHLORIDE
     Dosage: 60 MG, UNK
     Dates: start: 2014, end: 20171129
  5. PARACETAMOL [Concomitant]
     Active Substance: ACETAMINOPHEN
     Dosage: 500-1000 MG, UNK
     Route: 048
     Dates: start: 20170801, end: 20171129
  6. COMBIVENT [Concomitant]
     Active Substance: ALBUTEROL SULFATE\IPRATROPIUM BROMIDE
     Dosage: 2.5 ML, UNK
     Dates: start: 20171110, end: 20171115
  7. AVIL [Concomitant]
     Active Substance: PHENIRAMINE
     Dosage: 45.4 MG, UNK, AND 45.4 G, UNK
     Route: 048
     Dates: start: 20170801
  8. NEXIUM [Concomitant]
     Active Substance: ESOMEPRAZOLE MAGNESIUM
     Dosage: 40 MG, UNK
     Route: 048
     Dates: start: 20171024, end: 20171129
  9. VENTOLIN [Concomitant]
     Active Substance: ALBUTEROL SULFATE
     Dosage: 100 MUG, UNK
     Dates: start: 20171117, end: 20171124
  10. LASIX [Concomitant]
     Active Substance: FUROSEMIDE
     Dosage: 40 MG, UNK
     Dates: start: 20171117, end: 20171124
  11. INSULIN CRYSTALINE [Concomitant]
     Active Substance: INSULIN PORK\INSULIN PURIFIED PORK
     Dosage: 6 UNK, UNK
     Dates: start: 20171114, end: 20171114
  12. MONTELUKAST [Concomitant]
     Active Substance: MONTELUKAST SODIUM
     Dosage: 10 MG, UNK, AND 10 G, UNK
     Route: 048
     Dates: start: 20170801
  13. GAVISCON [Concomitant]
     Active Substance: ALUMINUM HYDROXIDE\MAGNESIUM CARBONATE
     Dosage: 200 ML, UNK
     Dates: start: 20171117, end: 20171124
  14. PRABEX [Concomitant]
     Dosage: 20 MG, UNK
     Dates: start: 20171117, end: 20171124
  15. FUROMID [Concomitant]
     Dosage: 20 MG, UNK
     Dates: start: 20171110, end: 20171115
  16. MOXIFLOXACIN. [Concomitant]
     Active Substance: MOXIFLOXACIN
     Dosage: 400 MG, UNK
     Dates: start: 20171117, end: 20171124
  17. JANUMET [Concomitant]
     Active Substance: METFORMIN HYDROCHLORIDE\SITAGLIPTIN PHOSPHATE
     Dosage: 1000 MG, UNK
     Dates: start: 20171116, end: 20171129
  18. CARFILZOMIB [Suspect]
     Active Substance: CARFILZOMIB
     Indication: PLASMA CELL MYELOMA
     Dosage: 95 MG, PER CHEMO REGIM
     Route: 042
     Dates: start: 20170801, end: 20171129
  19. GLICLAZIDE [Concomitant]
     Active Substance: GLICLAZIDE
     Dosage: 30 MG, UNK
     Dates: start: 2012, end: 20171115
  20. DYNDION [Concomitant]
     Dosage: 30 MG, UNK
     Dates: start: 2012, end: 20171115
  21. METHYLPREDNISOLONE. [Concomitant]
     Active Substance: METHYLPREDNISOLONE
     Dosage: 20 MG, UNK
     Route: 048
     Dates: start: 20170803
  22. ASIVIRAL [Concomitant]
     Active Substance: ACYCLOVIR
     Dosage: 200 MG, UNK
     Route: 048
     Dates: start: 20171024, end: 20171129
  23. DARATUMUMAB [Suspect]
     Active Substance: DARATUMUMAB
     Indication: PLASMA CELL MYELOMA
     Dosage: 1824 MG, PER CHEMO REGIM
     Route: 042
     Dates: start: 20170801, end: 20171128
  24. SINECOD [Concomitant]
     Active Substance: BUTAMIRATE CITRATE
     Dosage: 50 MG, UNK
     Dates: start: 20171117, end: 20171124

REACTIONS (1)
  - Cardio-respiratory arrest [Fatal]

NARRATIVE: CASE EVENT DATE: 20171129
